FAERS Safety Report 14326587 (Version 1)
Quarter: 2017Q4

REPORT INFORMATION
  Report Type: Spontaneous
  Country: US (occurrence: US)
  Receive Date: 20171227
  Receipt Date: 20171227
  Transmission Date: 20180321
  Serious: Yes (Life-Threatening)
  Sender: FDA-Public Use
  Company Number: None

PATIENT
  Age: 42 Year
  Sex: Male
  Weight: 63.5 kg

DRUGS (1)
  1. TROKIE HYBRID CITRUS 0.98GR.21.3MG THC, 19.9MG CBD, 20MG? [Suspect]
     Active Substance: CANNABIDIOL
     Indication: PRODUCT USED FOR UNKNOWN INDICATION
     Route: 048
     Dates: start: 20171216, end: 20171216

REACTIONS (10)
  - Product label issue [None]
  - Heart rate irregular [None]
  - Feeling abnormal [None]
  - Blood pressure decreased [None]
  - Angina pectoris [None]
  - Irregular breathing [None]
  - Hypopnoea [None]
  - Incorrect dose administered [None]
  - Anxiety [None]
  - Fear of death [None]

NARRATIVE: CASE EVENT DATE: 20171216
